FAERS Safety Report 8450503-8 (Version None)
Quarter: 2012Q2

REPORT INFORMATION
  Report Type: 
  Country: None (occurrence: None)
  Receive Date: 20120620
  Receipt Date: 20120612
  Transmission Date: 20120825
  Serious: Yes (Other)
  Sender: FDA-Public Use
  Company Number: CA-BRISTOL-MYERS SQUIBB COMPANY-16655409

PATIENT
  Age: 57 Year
  Sex: Female

DRUGS (8)
  1. FOLIC ACID [Concomitant]
  2. ORENCIA [Suspect]
     Indication: RHEUMATOID ARTHRITIS
     Dosage: LAST DOSE ON 30MAY12
     Route: 042
  3. MELOXICAM [Concomitant]
  4. ATIVAN [Concomitant]
  5. PREDNISONE [Concomitant]
  6. METHOTREXATE [Concomitant]
     Dosage: INJ
  7. HYDROXYCHLOROQUINE SULFATE [Concomitant]
  8. FUROSEMIDE [Concomitant]

REACTIONS (3)
  - ANXIETY [None]
  - PAIN IN JAW [None]
  - DEPRESSION [None]
